FAERS Safety Report 4927130-X (Version None)
Quarter: 2006Q1

REPORT INFORMATION
  Report Type: 
  Country: None (occurrence: None)
  Receive Date: 20060222
  Receipt Date: 20060209
  Transmission Date: 20060701
  Serious: Yes (Other)
  Sender: FDA-Public Use
  Company Number: 06-0020PO

PATIENT
  Sex: Female

DRUGS (1)
  1. MEFENAMIC ACID [Suspect]

REACTIONS (2)
  - OVERDOSE [None]
  - SYNCOPE [None]
